FAERS Safety Report 7095685-8 (Version None)
Quarter: 2010Q4

REPORT INFORMATION
  Report Type: 
  Country: None (occurrence: None)
  Receive Date: 20101102
  Receipt Date: 20101020
  Transmission Date: 20110411
  Serious: Yes (Other)
  Sender: FDA-Public Use
  Company Number: NGX_00138_2010

PATIENT
  Sex: Male
  Weight: 54 kg

DRUGS (5)
  1. QUTENZA [Suspect]
     Indication: POST HERPETIC NEURALGIA
     Dosage: (DF TOPICAL)
     Route: 061
     Dates: start: 20101020, end: 20101020
  2. LYRICA [Concomitant]
  3. FENTANYL-100 [Concomitant]
  4. NOVALGIN /00169801/ [Concomitant]
  5. CORTISON [Concomitant]

REACTIONS (5)
  - APPLICATION SITE PAIN [None]
  - BLOOD PRESSURE INCREASED [None]
  - HYPOTENSION [None]
  - NAUSEA [None]
  - SOMNOLENCE [None]
